FAERS Safety Report 5245681-8 (Version None)
Quarter: 2007Q1

REPORT INFORMATION
  Report Type: 
  Country: None (occurrence: None)
  Receive Date: 20070223
  Receipt Date: 20070214
  Transmission Date: 20070707
  Serious: Yes (Hospitalization)
  Sender: FDA-Public Use
  Company Number: FR-PFIZER INC-2007012267

PATIENT
  Age: 51 Year
  Sex: Female
  Weight: 75 kg

DRUGS (7)
  1. TAHOR [Suspect]
     Route: 048
  2. LEVOTHYROXINE SODIUM [Suspect]
     Dosage: TEXT:150 RG
     Route: 048
  3. AMAREL [Suspect]
     Indication: DIABETES MELLITUS NON-INSULIN-DEPENDENT
     Route: 048
  4. COTAREG [Suspect]
     Dosage: TEXT:1 DF
     Route: 048
  5. LOZOL [Suspect]
     Dosage: TEXT:1 DF
     Route: 048
  6. LEVONORGESTREL AND ETHINYL ESTRADIOL [Suspect]
     Dosage: TEXT:1 DF
     Route: 048
  7. LANTUS [Concomitant]
     Indication: DIABETES MELLITUS NON-INSULIN-DEPENDENT

REACTIONS (1)
  - CEREBROVASCULAR ACCIDENT [None]
